FAERS Safety Report 23569848 (Version 1)
Quarter: 2024Q1

REPORT INFORMATION
  Report Type: Report from Study
  Country: US (occurrence: US)
  Receive Date: 20240227
  Receipt Date: 20240227
  Transmission Date: 20240410
  Serious: Yes (Other)
  Sender: FDA-Public Use
  Company Number: US-BIOVITRUM-2024-US-001030

PATIENT
  Age: 38 Year
  Sex: Male

DRUGS (1)
  1. KINERET [Suspect]
     Active Substance: ANAKINRA
     Indication: Pericardial disease
     Dosage: DAILY
     Route: 058
     Dates: start: 20211120

REACTIONS (6)
  - Heart rate increased [Unknown]
  - Pruritus [Unknown]
  - Palpitations [Unknown]
  - Pericarditis [Unknown]
  - Cardiac valve disease [Unknown]
  - Laboratory test abnormal [Unknown]
